FAERS Safety Report 19827067 (Version 2)
Quarter: 2021Q4

REPORT INFORMATION
  Report Type: Spontaneous
  Country: CO (occurrence: CO)
  Receive Date: 20210914
  Receipt Date: 20211018
  Transmission Date: 20220303
  Serious: No
  Sender: FDA-Public Use
  Company Number: CO-AMGEN-COLSP2021137838

PATIENT
  Age: 62 Year
  Sex: Male

DRUGS (5)
  1. PEGFILGRASTIM [Suspect]
     Active Substance: PEGFILGRASTIM
     Indication: Testis cancer
     Dosage: 6 MILLIGRAM, Q3WK (DAYS 1, 2, 3, EACH 21 DAYS)
     Route: 058
  2. PEGFILGRASTIM [Suspect]
     Active Substance: PEGFILGRASTIM
     Indication: Retroperitoneal cancer
     Dosage: 6 MILLIGRAM, Q3WK (DAYS 1, 2, 3, EACH 21 DAYS)
     Route: 058
  3. IFOSFAMIDE [Concomitant]
     Active Substance: IFOSFAMIDE
     Dosage: 4250 MILLIGRAM  (2H)
     Route: 042
     Dates: start: 20210827
  4. MESNA [Concomitant]
     Active Substance: MESNA
     Dosage: 4250 MILLIGRAM  (2H)
     Route: 042
     Dates: start: 20210827
  5. DOXORUBICIN [Concomitant]
     Active Substance: DOXORUBICIN
     Dosage: 35 MILLIGRAM  (0.5 H)
     Route: 042
     Dates: start: 20210827

REACTIONS (1)
  - Device occlusion [Unknown]

NARRATIVE: CASE EVENT DATE: 20210828
